FAERS Safety Report 8536573 (Version 2)
Quarter: 2012Q4

REPORT INFORMATION
  Report Type: 
  Country: US (occurrence: US)
  Receive Date: 20120430
  Receipt Date: 20121004
  Transmission Date: 20130627
  Serious: Yes (Other)
  Sender: FDA-Public Use
  Company Number: US-ASTRAZENECA-2012SE26644

PATIENT
  Age: 60 Year
  Sex: Female
  Weight: 118.4 kg

DRUGS (10)
  1. CRESTOR [Suspect]
     Route: 048
  2. ZESTORETIC [Suspect]
     Dosage: 20/25 MG, DAILY
     Route: 048
  3. LISINOPRIL [Suspect]
     Route: 048
  4. LANTUS [Concomitant]
  5. GLUCOPHAGE [Concomitant]
  6. SYNTHROID [Concomitant]
  7. VENTOLIN [Concomitant]
     Dosage: 2 PUFFS 4 TIMES PER DAY AS NEEDED
  8. MEVACOR [Concomitant]
  9. FLONASE [Concomitant]
     Dosage: ONE PUFF TWO TIMES A DAY
  10. GLYBURIDE [Concomitant]

REACTIONS (10)
  - Foot fracture [Recovered/Resolved]
  - Visual impairment [Unknown]
  - Uterine cervical pain [Unknown]
  - Hyperlipidaemia [Unknown]
  - Hypertension [Unknown]
  - Hypothyroidism [Unknown]
  - Type 2 diabetes mellitus [Unknown]
  - Disorientation [Unknown]
  - Diabetes mellitus inadequate control [Unknown]
  - Musculoskeletal pain [Unknown]
